FAERS Safety Report 9255173 (Version 2)
Quarter: 2013Q2

REPORT INFORMATION
  Report Type: Spontaneous
  Country: PL (occurrence: None)
  Receive Date: 20130422
  Receipt Date: 20130606
  Transmission Date: 20140414
  Serious: Yes (Other)
  Sender: FDA-Public Use
  Company Number: ACET20130011

PATIENT
  Age: 35 Year
  Sex: Female

DRUGS (2)
  1. Q-PAP [Suspect]
     Indication: NASOPHARYNGITIS
     Route: 048
     Dates: start: 200602
  2. IMATINIB [Suspect]
     Indication: CHRONIC MYELOID LEUKAEMIA
     Dates: start: 200505, end: 2006

REACTIONS (5)
  - Hepatotoxicity [None]
  - Blood bilirubin increased [None]
  - Aspartate aminotransferase increased [None]
  - Alanine aminotransferase increased [None]
  - Drug-induced liver injury [None]
